FAERS Safety Report 12547386 (Version 1)
Quarter: 2016Q3

REPORT INFORMATION
  Report Type: Spontaneous
  Country: US (occurrence: US)
  Receive Date: 20160711
  Receipt Date: 20160711
  Transmission Date: 20161109
  Serious: No
  Sender: FDA-Public Use
  Company Number: US-EGALET US INC-US-2016EGA000209

PATIENT

DRUGS (1)
  1. SPRIX [Suspect]
     Active Substance: KETOROLAC TROMETHAMINE
     Indication: MUSCULOSKELETAL PAIN
     Dosage: 1 SPRAY IN 1 NOSTRIL EVERY 6-8 HOURS
     Route: 055
     Dates: start: 2016

REACTIONS (3)
  - Incorrect route of drug administration [Unknown]
  - Dysphonia [Unknown]
  - Somnolence [Recovered/Resolved]
